FAERS Safety Report 23192101 (Version 1)
Quarter: 2023Q4

REPORT INFORMATION
  Report Type: Spontaneous
  Country: US (occurrence: None)
  Receive Date: 20231116
  Receipt Date: 20231116
  Transmission Date: 20240109
  Serious: Yes (Hospitalization)
  Sender: FDA-Public Use
  Company Number: None

PATIENT
  Sex: Male

DRUGS (2)
  1. MYCOPHENOLIC ACID [Suspect]
     Active Substance: MYCOPHENOLIC ACID
     Indication: Renal transplant
     Dosage: 500MG TWICE DAILY BY MOUTH?
     Route: 048
     Dates: start: 202310
  2. TACROLIMUS [Suspect]
     Active Substance: TACROLIMUS
     Indication: Renal transplant
     Dosage: 2MG TWICE DAILY BY MOUTH?
     Route: 048
     Dates: start: 202310

REACTIONS (5)
  - Fall [None]
  - Loss of consciousness [None]
  - Head injury [None]
  - Concussion [None]
  - Cerebral haemorrhage [None]
